FAERS Safety Report 8673638 (Version 2)
Quarter: 2013Q1

REPORT INFORMATION
  Report Type: Spontaneous
  Country: US (occurrence: US)
  Receive Date: 20120719
  Receipt Date: 20130322
  Transmission Date: 20140127
  Serious: No
  Sender: FDA-Public Use
  Company Number: US-BRISTOL-MYERS SQUIBB COMPANY-16696692

PATIENT
  Age: 63 Year
  Sex: Male
  Weight: 71.65 kg

DRUGS (5)
  1. ERBITUX [Suspect]
     Indication: RECTAL CANCER STAGE IV
     Dosage: ALSO 560MG
     Route: 042
     Dates: start: 20120611
  2. IRINOTECAN [Concomitant]
  3. 5-FLUOROURACIL [Concomitant]
  4. GLIMEPIRIDE [Concomitant]
  5. LANTUS [Concomitant]

REACTIONS (1)
  - Hiccups [Recovered/Resolved]
